FAERS Safety Report 6839514-3 (Version None)
Quarter: 2010Q3

REPORT INFORMATION
  Report Type: 
  Country: None (occurrence: None)
  Receive Date: 20100714
  Receipt Date: 20091214
  Transmission Date: 20110219
  Serious: No
  Sender: FDA-Public Use
  Company Number: A0816781A

PATIENT
  Age: 56 Year
  Sex: Female

DRUGS (3)
  1. FLOVENT [Suspect]
     Indication: ASTHMA
     Dosage: 2PUFF TWICE PER DAY
     Route: 055
     Dates: start: 20091107, end: 20091110
  2. LISINOPRIL [Concomitant]
  3. ALBUTEROL SULATE [Concomitant]

REACTIONS (4)
  - COUGH [None]
  - DRY MOUTH [None]
  - DRY THROAT [None]
  - DYSPHONIA [None]
